FAERS Safety Report 8333357-X (Version None)
Quarter: 2012Q2

REPORT INFORMATION
  Report Type: 
  Country: None (occurrence: None)
  Receive Date: 20120503
  Receipt Date: 20120426
  Transmission Date: 20120825
  Serious: Yes (Other)
  Sender: FDA-Public Use
  Company Number: AR-ABBOTT-12P-007-0931055-00

PATIENT
  Sex: Female

DRUGS (1)
  1. HUMIRA [Suspect]
     Indication: RHEUMATOID ARTHRITIS
     Route: 058
     Dates: start: 20090101

REACTIONS (8)
  - ABDOMINAL PAIN UPPER [None]
  - CONJUNCTIVITIS [None]
  - AURA [None]
  - DIZZINESS [None]
  - NASAL DISCOMFORT [None]
  - RHINORRHOEA [None]
  - CONVULSION [None]
  - DRY EYE [None]
